FAERS Safety Report 9053725 (Version 2)
Quarter: 2013Q1

REPORT INFORMATION
  Report Type: Spontaneous
  Country: FR (occurrence: FR)
  Receive Date: 20130208
  Receipt Date: 20130312
  Transmission Date: 20140127
  Serious: Yes (Hospitalization)
  Sender: FDA-Public Use
  Company Number: FR-BAYER-2013-016614

PATIENT
  Age: 46 Year
  Sex: Female
  Weight: 100 kg

DRUGS (3)
  1. MIRENA [Suspect]
     Indication: CONTRACEPTION
     Dosage: 20 MCG/24HR, CONT
     Route: 015
     Dates: start: 2009
  2. MIRENA [Suspect]
     Indication: METRORRHAGIA
  3. MIRENA [Suspect]
     Indication: ENDOMETRIAL HYPERTROPHY

REACTIONS (1)
  - Acute coronary syndrome [Recovering/Resolving]
